FAERS Safety Report 13941761 (Version 1)
Quarter: 2017Q3

REPORT INFORMATION
  Report Type: Spontaneous
  Country: US (occurrence: US)
  Receive Date: 20170906
  Receipt Date: 20170906
  Transmission Date: 20171127
  Serious: Yes (Other)
  Sender: FDA-Public Use
  Company Number: None

PATIENT
  Age: 35 Year
  Sex: Male
  Weight: 92.25 kg

DRUGS (1)
  1. BUPROPION SR 150MG [Suspect]
     Active Substance: BUPROPION
     Indication: SMOKING CESSATION THERAPY
     Dosage: ?          QUANTITY:1 TABLET(S);?
     Route: 048
     Dates: start: 20170315, end: 20170320

REACTIONS (2)
  - Therapy change [None]
  - Suicidal ideation [None]

NARRATIVE: CASE EVENT DATE: 20170320
